FAERS Safety Report 7463204-X (Version None)
Quarter: 2011Q2

REPORT INFORMATION
  Report Type: 
  Country: None (occurrence: None)
  Receive Date: 20110506
  Receipt Date: 20110429
  Transmission Date: 20111010
  Serious: Yes (Hospitalization)
  Sender: FDA-Public Use
  Company Number: US-ROCHE-765777

PATIENT
  Sex: Female
  Weight: 55.5 kg

DRUGS (12)
  1. AVASTIN [Suspect]
     Indication: GLIOBLASTOMA MULTIFORME
     Route: 042
     Dates: start: 20100513
  2. BACTRIM DS [Concomitant]
     Dosage: 800-160 MG
  3. PRILOSEC [Concomitant]
     Dosage: DELAYED RELEASE
  4. VICODIN [Concomitant]
     Dosage: 5-500 MG
  5. MELATONIN [Concomitant]
  6. AVASTIN [Suspect]
     Dosage: MAINTENANCE COURSE.
     Route: 042
     Dates: start: 20100729
  7. ZOFRAN [Concomitant]
  8. LYRICA [Concomitant]
  9. ATIVAN [Concomitant]
  10. KEPPRA [Concomitant]
  11. AVASTIN [Suspect]
     Dosage: 2 DOSES OF BEVACIZUMAB
     Route: 042
     Dates: start: 20100603, end: 20100617
  12. AVASTIN [Suspect]
     Route: 042
     Dates: start: 20110224

REACTIONS (2)
  - PARONYCHIA [None]
  - HERPES SIMPLEX [None]
